FAERS Safety Report 11122389 (Version 2)
Quarter: 2015Q3

REPORT INFORMATION
  Report Type: Spontaneous
  Country: US (occurrence: US)
  Receive Date: 20150519
  Receipt Date: 20150818
  Transmission Date: 20151125
  Serious: Yes (Hospitalization, Other)
  Sender: FDA-Public Use
  Company Number: US-BAYER-2015-227530

PATIENT
  Age: 53 Year
  Sex: Male

DRUGS (3)
  1. STIVARGA [Suspect]
     Active Substance: REGORAFENIB
     Indication: METASTASES TO LIVER
     Dosage: 4 PER DAY
  2. STIVARGA [Suspect]
     Active Substance: REGORAFENIB
     Indication: RECTAL ADENOCARCINOMA
     Dosage: 3 PER DAY
  3. STIVARGA [Suspect]
     Active Substance: REGORAFENIB
     Indication: COLORECTAL CANCER STAGE IV
     Dosage: 1 OR 2 PER DAY
     Route: 048
     Dates: start: 2014

REACTIONS (4)
  - Urinary incontinence [None]
  - Colorectal cancer metastatic [None]
  - Myocardial infarction [Recovered/Resolved]
  - Weight decreased [None]

NARRATIVE: CASE EVENT DATE: 20150423
